FAERS Safety Report 10469177 (Version 2)
Quarter: 2014Q3

REPORT INFORMATION
  Report Type: Spontaneous
  Country: IL (occurrence: None)
  Receive Date: 20140919
  Receipt Date: 20140929
  Transmission Date: 20150326
  Serious: Yes (Life-Threatening, Hospitalization, Disabling)
  Sender: FDA-Public Use
  Company Number: 2014IL003686

PATIENT
  Age: 61 Year
  Sex: Female

DRUGS (1)
  1. PONATINIB [Suspect]
     Active Substance: PONATINIB
     Indication: SARCOMA METASTATIC
     Route: 048
     Dates: start: 20140817, end: 20140823

REACTIONS (2)
  - Cardiac failure congestive [None]
  - Off label use [None]

NARRATIVE: CASE EVENT DATE: 20140817
